FAERS Safety Report 25288898 (Version 1)
Quarter: 2025Q2

REPORT INFORMATION
  Report Type: Spontaneous
  Country: US (occurrence: US)
  Receive Date: 20250509
  Receipt Date: 20250509
  Transmission Date: 20250717
  Serious: Yes (Life-Threatening, Hospitalization, Other)
  Sender: QUAGEN PHARMACEUTICALS
  Company Number: US-QUAGEN-2025QUALIT00329

PATIENT
  Age: 41 Year
  Sex: Male

DRUGS (1)
  1. LIDOCAINE [Suspect]
     Active Substance: LIDOCAINE
     Indication: Skin wound
     Route: 061

REACTIONS (14)
  - Unresponsive to stimuli [Recovered/Resolved]
  - Generalised tonic-clonic seizure [Recovered/Resolved]
  - Status epilepticus [Recovered/Resolved]
  - Gaze palsy [Recovered/Resolved]
  - Postictal state [Recovered/Resolved]
  - Toxicity to various agents [Recovered/Resolved]
  - Tachycardia [Recovered/Resolved]
  - Tachypnoea [Recovered/Resolved]
  - Muscle twitching [Recovered/Resolved]
  - Skin lesion [Recovered/Resolved]
  - Bradycardia [Recovered/Resolved]
  - Blood pressure decreased [Recovered/Resolved]
  - Intentional product misuse [Unknown]
  - Product use in unapproved indication [Unknown]
